FAERS Safety Report 19975941 (Version 1)
Quarter: 2021Q4

REPORT INFORMATION
  Report Type: Spontaneous
  Country: US (occurrence: US)
  Receive Date: 20211020
  Receipt Date: 20211020
  Transmission Date: 20220303
  Serious: Yes (Other)
  Sender: FDA-Public Use
  Company Number: US-CELGENE-USA-20211004563

PATIENT
  Sex: Female
  Weight: 106.24 kg

DRUGS (11)
  1. THALOMID [Suspect]
     Active Substance: THALIDOMIDE
     Indication: Anaemia
     Dosage: 50 MG
     Route: 065
     Dates: start: 201803
  2. THALOMID [Suspect]
     Active Substance: THALIDOMIDE
     Dosage: 100 MG
     Route: 065
     Dates: start: 201805
  3. THALOMID [Suspect]
     Active Substance: THALIDOMIDE
     Dosage: 50 MG
     Route: 065
     Dates: start: 201808
  4. SUDAFED [Concomitant]
     Active Substance: PSEUDOEPHEDRINE HYDROCHLORIDE
     Indication: Product used for unknown indication
     Route: 065
  5. ESCITALOPRAM OXALATE [Concomitant]
     Active Substance: ESCITALOPRAM OXALATE
     Indication: Product used for unknown indication
     Route: 065
  6. METHOCARBAMOL [Concomitant]
     Active Substance: METHOCARBAMOL
     Indication: Product used for unknown indication
     Route: 065
  7. TYLENOL [Concomitant]
     Active Substance: ACETAMINOPHEN
     Indication: Product used for unknown indication
     Route: 065
  8. TOPROL XL [Concomitant]
     Active Substance: METOPROLOL SUCCINATE
     Indication: Product used for unknown indication
     Route: 065
  9. POTASSIUM [Concomitant]
     Active Substance: POTASSIUM
     Indication: Product used for unknown indication
     Route: 065
  10. LASIX [Concomitant]
     Active Substance: FUROSEMIDE
     Indication: Product used for unknown indication
     Route: 065
  11. ASPIRIN [Concomitant]
     Active Substance: ASPIRIN
     Indication: Product used for unknown indication
     Route: 065

REACTIONS (3)
  - Internal haemorrhage [Unknown]
  - Feeling abnormal [Unknown]
  - Muscle spasms [Unknown]
